FAERS Safety Report 9887526 (Version 2)
Quarter: 2014Q1

REPORT INFORMATION
  Report Type: Spontaneous
  Country: PE (occurrence: None)
  Receive Date: 20140206
  Receipt Date: 20140221
  Transmission Date: 20141002
  Serious: Yes (Death)
  Sender: FDA-Public Use
  Company Number: TPU2014-00032

PATIENT
  Age: 84 Year
  Sex: Female

DRUGS (2)
  1. VERSATIS [Suspect]
     Indication: CANCER PAIN
     Dosage: 0.5 PLASTER, 1 IN 1 D, TOPICAL
     Route: 061
     Dates: start: 20131121, end: 20131221
  2. TRANSTEC [Suspect]
     Indication: CANCER PAIN
     Dosage: 0.5 PLASTER, 1 IN 84 HR, TRANSDERAMAL
     Route: 062
     Dates: start: 20131108, end: 20131221

REACTIONS (2)
  - Disease progression [None]
  - Neoplasm malignant [None]
